FAERS Safety Report 14304540 (Version 1)
Quarter: 2017Q4

REPORT INFORMATION
  Report Type: Spontaneous
  Country: JP (occurrence: JP)
  Receive Date: 20171219
  Receipt Date: 20171219
  Transmission Date: 20180321
  Serious: Yes (Hospitalization, Other)
  Sender: FDA-Public Use
  Company Number: JP-OTSUKA-JP-2012-15031

PATIENT
  Age: 21 Year
  Sex: Male
  Weight: 50 kg

DRUGS (5)
  1. SEROQUEL [Concomitant]
     Active Substance: QUETIAPINE FUMARATE
     Indication: SCHIZOPHRENIA
     Dosage: 100 MG, QD
     Route: 048
     Dates: start: 20120228
  2. ABILIFY [Suspect]
     Active Substance: ARIPIPRAZOLE
     Indication: SCHIZOPHRENIA
     Dosage: 18 MG, QD
     Route: 048
     Dates: start: 20120404, end: 20120415
  3. FLUNITRAZEPAM [Concomitant]
     Active Substance: FLUNITRAZEPAM
     Dosage: TABS
     Dates: start: 20120228, end: 20120417
  4. ROHYPNOL [Concomitant]
     Active Substance: FLUNITRAZEPAM
     Indication: INSOMNIA
     Dosage: 2 MG, QD
     Route: 048
     Dates: start: 20120228, end: 20120417
  5. QUETIAPINE. [Concomitant]
     Active Substance: QUETIAPINE
     Dosage: TABS
     Dates: start: 20120228

REACTIONS (2)
  - Parkinsonism [Recovering/Resolving]
  - Aggression [Unknown]

NARRATIVE: CASE EVENT DATE: 20120414
